FAERS Safety Report 7224410-2 (Version None)
Quarter: 2011Q1

REPORT INFORMATION
  Report Type: 
  Country: None (occurrence: None)
  Receive Date: 20110113
  Receipt Date: 20110106
  Transmission Date: 20110831
  Serious: Yes (Death)
  Sender: FDA-Public Use
  Company Number: US-JNJFOC-20110101663

PATIENT
  Age: 49 Year
  Sex: Female

DRUGS (7)
  1. DILTIAZEM [Suspect]
     Indication: SUICIDE ATTEMPT
     Route: 048
  2. ANTICHOLINERGIC [Suspect]
     Indication: SUICIDE ATTEMPT
  3. AMOXAPINE [Suspect]
     Indication: SUICIDE ATTEMPT
     Route: 048
  4. LORAZEPAM [Suspect]
     Indication: SUICIDE ATTEMPT
     Route: 048
  5. ACETAMINOPHEN [Suspect]
     Route: 048
  6. ACETAMINOPHEN [Suspect]
     Indication: SUICIDE ATTEMPT
     Route: 048
  7. HYDROCHLOROTHIAZIDE [Suspect]
     Indication: SUICIDE ATTEMPT
     Route: 048

REACTIONS (1)
  - TOXICITY TO VARIOUS AGENTS [None]
